FAERS Safety Report 24957589 (Version 1)
Quarter: 2025Q1

REPORT INFORMATION
  Report Type: Spontaneous
  Country: US (occurrence: US)
  Receive Date: 20250212
  Receipt Date: 20250212
  Transmission Date: 20250409
  Serious: No
  Sender: Teyro Labs
  Company Number: US-TEYRO-2024-TY-000900

PATIENT
  Age: 51 Year
  Sex: Male

DRUGS (2)
  1. CAPECITABINE [Suspect]
     Active Substance: CAPECITABINE
     Indication: Pancreatic neuroendocrine tumour metastatic
     Route: 065
  2. TEMOZOLOMIDE [Suspect]
     Active Substance: TEMOZOLOMIDE
     Indication: Pancreatic neuroendocrine tumour metastatic
     Route: 065

REACTIONS (4)
  - Blood 1,25-dihydroxycholecalciferol decreased [Unknown]
  - Diarrhoea [Unknown]
  - Taste disorder [Unknown]
  - Off label use [Unknown]
